FAERS Safety Report 8871147 (Version 1)
Quarter: 2012Q4

REPORT INFORMATION
  Report Type: 
  Country: US (occurrence: US)
  Receive Date: 20121029
  Receipt Date: 20121029
  Transmission Date: 20130627
  Serious: Yes (Other)
  Sender: FDA-Public Use
  Company Number: US-ROCHE-1144086

PATIENT
  Age: 52 Year
  Sex: Female

DRUGS (13)
  1. XELODA [Suspect]
     Indication: PRODUCT USED FOR UNKNOWN INDICATION
     Route: 048
     Dates: start: 20120620, end: 20120924
  2. XELODA [Suspect]
     Indication: BREAST CANCER METASTATIC
  3. CALCIUM CARBONATE [Concomitant]
  4. OXYCODONE CR [Concomitant]
  5. DIAZEPAM [Concomitant]
  6. LISINOPRIL [Concomitant]
  7. RABEPRAZOLE [Concomitant]
  8. CARISOPRODOL [Concomitant]
  9. IBUPROFEN [Concomitant]
  10. OXYCODONE [Concomitant]
  11. ASPIRIN [Concomitant]
  12. EVEROLIMUS [Concomitant]
  13. AROMASIN [Concomitant]

REACTIONS (1)
  - Disease progression [Not Recovered/Not Resolved]
